FAERS Safety Report 4707484-X (Version None)
Quarter: 2005Q3

REPORT INFORMATION
  Report Type: 
  Country: None (occurrence: None)
  Receive Date: 20050706
  Receipt Date: 20050624
  Transmission Date: 20060218
  Serious: Yes (Hospitalization)
  Sender: FDA-Public Use
  Company Number: FR-GLAXOSMITHKLINE-B0385708A

PATIENT
  Age: 73 Year
  Sex: Male

DRUGS (7)
  1. ZELITREX [Suspect]
     Route: 048
     Dates: start: 20050428, end: 20050502
  2. CIFLOX [Suspect]
     Indication: PROSTATITIS
     Route: 048
     Dates: start: 20050429, end: 20050505
  3. OROKEN [Suspect]
     Indication: PROSTATITIS
     Route: 048
     Dates: start: 20050429, end: 20050505
  4. AVODART [Concomitant]
     Indication: BENIGN PROSTATIC HYPERPLASIA
     Route: 048
     Dates: start: 20050504
  5. XATRAL [Concomitant]
     Indication: BENIGN PROSTATIC HYPERPLASIA
     Dates: start: 20050504
  6. URINARY CATHETERISATION [Concomitant]
     Indication: BENIGN PROSTATIC HYPERPLASIA
  7. HYDRATION [Concomitant]

REACTIONS (1)
  - VASCULAR PURPURA [None]
